FAERS Safety Report 24525709 (Version 5)
Quarter: 2025Q2

REPORT INFORMATION
  Report Type: Spontaneous
  Country: US (occurrence: US)
  Receive Date: 20241020
  Receipt Date: 20250527
  Transmission Date: 20250716
  Serious: Yes (Hospitalization, Other)
  Sender: SANOFI AVENTIS
  Company Number: US-SA-2024SA092842

PATIENT
  Age: 71 Year
  Sex: Male

DRUGS (3)
  1. DUPIXENT [Suspect]
     Active Substance: DUPILUMAB
     Indication: Eosinophilic oesophagitis
     Dosage: 300 MG, QW
     Route: 058
     Dates: start: 202304
  2. TETRABENAZINE [Concomitant]
     Active Substance: TETRABENAZINE
  3. AMANTADINE [Concomitant]
     Active Substance: AMANTADINE

REACTIONS (6)
  - Muscle rupture [Unknown]
  - Type 2 diabetes mellitus [Unknown]
  - Peripheral swelling [Unknown]
  - Cellulitis [Unknown]
  - COVID-19 [Unknown]
  - Eosinophilic oesophagitis [Unknown]
